FAERS Safety Report 7479477-3 (Version None)
Quarter: 2011Q2

REPORT INFORMATION
  Report Type: 
  Country: None (occurrence: None)
  Receive Date: 20110513
  Receipt Date: 20110505
  Transmission Date: 20111010
  Serious: Yes (Hospitalization)
  Sender: FDA-Public Use
  Company Number: BR-MEDIMMUNE-MEDI-0013181

PATIENT
  Sex: Male
  Weight: 13 kg

DRUGS (1)
  1. SYNAGIS [Suspect]
     Indication: BRONCHOPULMONARY DYSPLASIA
     Route: 030
     Dates: start: 20100418

REACTIONS (8)
  - BRONCHIOLITIS [None]
  - INCREASED UPPER AIRWAY SECRETION [None]
  - NASOPHARYNGITIS [None]
  - PYREXIA [None]
  - FATIGUE [None]
  - FEEDING DISORDER NEONATAL [None]
  - DYSPNOEA [None]
  - VOMITING [None]
